FAERS Safety Report 4831322-8 (Version None)
Quarter: 2005Q4

REPORT INFORMATION
  Report Type: 
  Country: None (occurrence: None)
  Receive Date: 20051114
  Receipt Date: 20051026
  Transmission Date: 20060501
  Serious: Yes (Death, Hospitalization)
  Sender: FDA-Public Use
  Company Number: 200509677

PATIENT
  Age: 80 Year
  Sex: Female

DRUGS (1)
  1. BOTULINUM TOXIN TYPE A [Suspect]
     Indication: MUSCLE SPASTICITY

REACTIONS (13)
  - ASPIRATION [None]
  - BLISTER [None]
  - CELLULITIS [None]
  - CONTUSION [None]
  - CUTANEOUS VASCULITIS [None]
  - GRANULOMA [None]
  - INFLAMMATION [None]
  - MUSCULOSKELETAL DISORDER [None]
  - MYCOBACTERIAL INFECTION [None]
  - RESPIRATORY FAILURE [None]
  - SKIN LESION [None]
  - SKIN NODULE [None]
  - SKIN ULCER [None]
